FAERS Safety Report 5491124-9 (Version None)
Quarter: 2007Q4

REPORT INFORMATION
  Report Type: 
  Country: None (occurrence: None)
  Receive Date: 20071019
  Receipt Date: 20071011
  Transmission Date: 20080405
  Serious: Yes (Hospitalization, Other)
  Sender: FDA-Public Use
  Company Number: US-PFIZER INC-2007075724

PATIENT
  Sex: Male

DRUGS (14)
  1. LIPITOR [Suspect]
     Indication: BLOOD CHOLESTEROL INCREASED
  2. CELEBREX [Suspect]
  3. PREDNISONE [Suspect]
  4. PROTONIX [Suspect]
  5. AMBIEN [Concomitant]
  6. ACETYLSALICYLIC ACID [Concomitant]
  7. GLUCOSAMINE [Concomitant]
  8. CHONDROITIN [Concomitant]
  9. ALL OTHER THERAPEUTIC PRODUCTS [Concomitant]
  10. CHONDROITIN/GLUCOSAMINE/METHYLSULFONYLMETHANE [Concomitant]
  11. VITAMIN E [Concomitant]
  12. CENTRUM SILVER [Concomitant]
  13. GINSANA [Concomitant]
  14. ROYAL JELLY [Concomitant]

REACTIONS (22)
  - ABDOMINAL PAIN [None]
  - ABSCESS DRAINAGE [None]
  - ANIMAL BITE [None]
  - BACK PAIN [None]
  - BURNING SENSATION [None]
  - DIVERTICULITIS [None]
  - ENDODONTIC PROCEDURE [None]
  - EPISTAXIS [None]
  - GLOSSODYNIA [None]
  - INFECTION [None]
  - INTESTINAL RESECTION [None]
  - LOBAR PNEUMONIA [None]
  - MYALGIA [None]
  - NEPHROLITHIASIS [None]
  - OEDEMA MOUTH [None]
  - ORAL CANDIDIASIS [None]
  - ORAL DISCOMFORT [None]
  - ORAL PAIN [None]
  - OSTEOARTHRITIS [None]
  - PHARYNGOLARYNGEAL PAIN [None]
  - POST PROCEDURAL INFECTION [None]
  - SWOLLEN TONGUE [None]
